FAERS Safety Report 20184238 (Version 1)
Quarter: 2021Q4

REPORT INFORMATION
  Report Type: Report from Study
  Country: US (occurrence: US)
  Receive Date: 20211214
  Receipt Date: 20211214
  Transmission Date: 20220303
  Serious: Yes (Hospitalization)
  Sender: FDA-Public Use
  Company Number: US-BIOGEN-2021BI00991292

PATIENT
  Sex: Female

DRUGS (5)
  1. TYSABRI [Suspect]
     Active Substance: NATALIZUMAB
     Indication: Multiple sclerosis
     Route: 065
     Dates: start: 20180416, end: 20210104
  2. TYSABRI [Suspect]
     Active Substance: NATALIZUMAB
     Dosage: Q4 TO 6 WEEKS
     Route: 065
     Dates: end: 20210104
  3. TYSABRI [Suspect]
     Active Substance: NATALIZUMAB
     Route: 042
     Dates: end: 20210208
  4. TYSABRI [Suspect]
     Active Substance: NATALIZUMAB
     Dosage: 300 MG IV Q 4-6 WEEKS
     Route: 042
     Dates: end: 20201230
  5. LABETALOL [Concomitant]
     Active Substance: LABETALOL\LABETALOL HYDROCHLORIDE
     Indication: Product used for unknown indication
     Route: 048

REACTIONS (3)
  - Pre-eclampsia [Unknown]
  - Maternal exposure during pregnancy [Recovered/Resolved]
  - Prescribed underdose [Recovered/Resolved]
